FAERS Safety Report 12218112 (Version 1)
Quarter: 2016Q1

REPORT INFORMATION
  Report Type: Spontaneous
  Country: IT (occurrence: IT)
  Receive Date: 20160329
  Receipt Date: 20160329
  Transmission Date: 20160526
  Serious: Yes (Other)
  Sender: FDA-Public Use
  Company Number: IT-JNJFOC-20160322367

PATIENT

DRUGS (1)
  1. DOXORUBICIN HYDROCHLORIDE. [Suspect]
     Active Substance: DOXORUBICIN HYDROCHLORIDE
     Indication: HEPATIC CANCER
     Route: 050

REACTIONS (6)
  - Abdominal pain [Unknown]
  - Hyponatraemia [Unknown]
  - Incorrect route of drug administration [Unknown]
  - Cardiovascular disorder [Unknown]
  - Off label use [Unknown]
  - Product use issue [Unknown]
